FAERS Safety Report 7559669-5 (Version None)
Quarter: 2011Q2

REPORT INFORMATION
  Report Type: 
  Country: None (occurrence: None)
  Receive Date: 20110617
  Receipt Date: 20110617
  Transmission Date: 20111010
  Serious: No
  Sender: FDA-Public Use
  Company Number: None

PATIENT
  Sex: Male

DRUGS (1)
  1. LIPITOR [Suspect]
     Indication: BLOOD CHOLESTEROL INCREASED
     Dosage: 1 TABLET ONCE DAILY PO
     Route: 048
     Dates: start: 20110502, end: 20110616

REACTIONS (2)
  - MYALGIA [None]
  - ARTHRALGIA [None]
